FAERS Safety Report 12484485 (Version 2)
Quarter: 2016Q3

REPORT INFORMATION
  Report Type: Spontaneous
  Country: AR (occurrence: AR)
  Receive Date: 20160621
  Receipt Date: 20160705
  Transmission Date: 20161109
  Serious: Yes (Other)
  Sender: FDA-Public Use
  Company Number: PHHY2016AR084703

PATIENT
  Age: 50 Year
  Sex: Female

DRUGS (2)
  1. DIOVAN [Suspect]
     Active Substance: VALSARTAN
     Indication: BLOOD PRESSURE FLUCTUATION
     Dosage: 160 MG, BID
     Route: 065
     Dates: start: 201501
  2. SALBUTAMOL [Concomitant]
     Active Substance: ALBUTEROL
     Indication: PRODUCT USED FOR UNKNOWN INDICATION
     Dosage: PRN (IN CASE SHE NEEDED IT)
     Route: 065

REACTIONS (2)
  - Arrhythmia [Recovering/Resolving]
  - Bronchospasm [Recovered/Resolved]

NARRATIVE: CASE EVENT DATE: 201606
